FAERS Safety Report 6703314-5 (Version None)
Quarter: 2010Q2

REPORT INFORMATION
  Report Type: 
  Country: None (occurrence: None)
  Receive Date: 20100430
  Receipt Date: 20100325
  Transmission Date: 20101027
  Serious: Yes (Hospitalization, Other)
  Sender: FDA-Public Use
  Company Number: US-BAYER-201010139NA

PATIENT
  Age: 42 Year
  Sex: Female
  Weight: 66 kg

DRUGS (8)
  1. YAZ [Suspect]
     Indication: ORAL CONTRACEPTION
     Route: 048
     Dates: start: 20070901, end: 20090801
  2. YAZ [Suspect]
     Route: 048
  3. UNKNOWN ANTIBIOTIC [Concomitant]
  4. IBUPROFEN [Concomitant]
  5. ADEPEX [Concomitant]
     Indication: WEIGHT DECREASED
     Dates: start: 20000101, end: 20070101
  6. CEFOXITIN [Concomitant]
  7. ZOFRAN [Concomitant]
  8. ALLEGRA [Concomitant]

REACTIONS (4)
  - ABDOMINAL PAIN UPPER [None]
  - CHOLECYSTITIS ACUTE [None]
  - CHOLELITHIASIS [None]
  - PAIN [None]
